FAERS Safety Report 17965402 (Version 4)
Quarter: 2021Q3

REPORT INFORMATION
  Report Type: Spontaneous
  Country: US (occurrence: US)
  Receive Date: 20200630
  Receipt Date: 20210816
  Transmission Date: 20211014
  Serious: Yes (Other)
  Sender: FDA-Public Use
  Company Number: US-SA-2020SA167966

PATIENT
  Sex: Female

DRUGS (1)
  1. DUPIXENT [Suspect]
     Active Substance: DUPILUMAB
     Indication: ASTHMA
     Dosage: 300 MG, QOW
     Route: 058
     Dates: start: 202005

REACTIONS (5)
  - Headache [Recovered/Resolved]
  - Skin exfoliation [Recovered/Resolved]
  - Product dose omission issue [Unknown]
  - Rash [Recovered/Resolved]
  - Pneumonia [Unknown]
